FAERS Safety Report 4597699-6 (Version None)
Quarter: 2005Q1

REPORT INFORMATION
  Report Type: 
  Country: None (occurrence: None)
  Receive Date: 20050303
  Receipt Date: 20050225
  Transmission Date: 20050727
  Serious: Yes (Hospitalization)
  Sender: FDA-Public Use
  Company Number: JP-ABBOTT-05P-087-0292129-00

PATIENT
  Sex: Male

DRUGS (3)
  1. LIPANTIL [Suspect]
     Indication: HYPERLIPIDAEMIA
     Route: 048
     Dates: start: 20041027, end: 20041211
  2. ETHYL ICOSAPENTATE [Suspect]
     Indication: DRUG USE FOR UNKNOWN INDICATION
     Dates: start: 20041027, end: 20041211
  3. CILNIDIPINE [Suspect]
     Indication: DRUG USE FOR UNKNOWN INDICATION
     Dates: start: 20041027, end: 20041211

REACTIONS (3)
  - CHROMATURIA [None]
  - JAUNDICE [None]
  - LIVER DISORDER [None]
